FAERS Safety Report 8948069 (Version 1)
Quarter: 2012Q4

REPORT INFORMATION
  Report Type: 
  Country: GB (occurrence: GB)
  Receive Date: 20121204
  Receipt Date: 20121204
  Transmission Date: 20130627
  Serious: Yes (Hospitalization, Other)
  Sender: FDA-Public Use
  Company Number: GB-AMGEN-GBRSP2012076642

PATIENT
  Age: 52 Year
  Sex: Female

DRUGS (7)
  1. ENBREL [Suspect]
     Indication: RHEUMATOID ARTHRITIS
     Dosage: 25 mg, 2x/week
     Route: 058
     Dates: start: 200206
  2. PREDNISOLONE [Concomitant]
     Dosage: 4 mg, UNK
  3. IBUPROFEN [Concomitant]
     Dosage: 600 mg, UNK
  4. AMITRIPTYLINE [Concomitant]
     Dosage: 25 mg at night
  5. OMEPRAZOLE [Concomitant]
     Dosage: 10 mg, UNK
  6. FOSINOPRIL [Concomitant]
     Dosage: 10 mg, UNK
  7. CALCICHEW-D3 [Concomitant]
     Dosage: UNK

REACTIONS (4)
  - Tonic convulsion [Recovering/Resolving]
  - Renal failure acute [Recovering/Resolving]
  - Meningitis pneumococcal [Recovering/Resolving]
  - Otitis media acute [Recovering/Resolving]
